FAERS Safety Report 23996235 (Version 2)
Quarter: 2024Q2

REPORT INFORMATION
  Report Type: Spontaneous
  Country: DK (occurrence: None)
  Receive Date: 20240620
  Receipt Date: 20240626
  Transmission Date: 20240716
  Serious: Yes (Death, Life-Threatening, Hospitalization, Other)
  Sender: FDA-Public Use
  Company Number: 2024A141844

PATIENT
  Sex: Female
  Weight: 76 kg

DRUGS (2)
  1. LYNPARZA [Suspect]
     Active Substance: OLAPARIB
     Indication: Ovarian cancer recurrent
     Dosage: DOSAGE: FROM MAR2018 TO 21FEB2024: 200 MG TWICE A DAY. FROM 22FEB2024: THE TREATMENT WAS ADMINIST...
     Route: 048
     Dates: start: 201803, end: 20240322
  2. HJERTEALBYL [Concomitant]
     Indication: Thrombosis prophylaxis
     Dates: start: 2020

REACTIONS (11)
  - Myelodysplastic syndrome [Fatal]
  - Malaise [Unknown]
  - Pneumonia [Fatal]
  - Acute respiratory distress syndrome [Unknown]
  - Musculoskeletal chest pain [Unknown]
  - Night sweats [Unknown]
  - Dyspnoea [Unknown]
  - Infection [Unknown]
  - General symptom [Unknown]
  - Fatigue [Unknown]
  - Pyrexia [Unknown]

NARRATIVE: CASE EVENT DATE: 20240201
